FAERS Safety Report 6884645-5 (Version None)
Quarter: 2010Q3

REPORT INFORMATION
  Report Type: 
  Country: None (occurrence: None)
  Receive Date: 20100729
  Receipt Date: 20070724
  Transmission Date: 20110219
  Serious: No
  Sender: FDA-Public Use
  Company Number: US-PFIZER INC-2007051426

PATIENT
  Sex: Male
  Weight: 90.909 kg

DRUGS (13)
  1. CELEBREX [Suspect]
     Indication: SWELLING
     Dates: start: 20070615
  2. VALSARTAN [Concomitant]
  3. CYANOCOBALAMIN [Concomitant]
  4. DESOXYN [Concomitant]
  5. HYDROCHLOROTHIAZIDE [Concomitant]
  6. LISINOPRIL [Concomitant]
  7. COREG [Concomitant]
  8. RANITIDINE [Concomitant]
  9. NEXIUM [Concomitant]
  10. LORAZEPAM [Concomitant]
  11. MINOCYCLINE HYDROCHLORIDE [Concomitant]
  12. ALLOPURINOL [Concomitant]
  13. OMEGA-3 TRIGLYCERIDES [Concomitant]

REACTIONS (1)
  - PARAESTHESIA [None]
